FAERS Safety Report 4990411-8 (Version None)
Quarter: 2006Q2

REPORT INFORMATION
  Report Type: 
  Country: None (occurrence: None)
  Receive Date: 20060427
  Receipt Date: 20060413
  Transmission Date: 20061013
  Serious: Yes (Hospitalization)
  Sender: FDA-Public Use
  Company Number: 2006RR-02020

PATIENT
  Age: 11 Year
  Sex: Male

DRUGS (1)
  1. IBUPROFEN [Suspect]
     Indication: PAIN
     Dosage: 400 MG, ORAL
     Route: 048

REACTIONS (19)
  - AGGRESSION [None]
  - ATRIAL FIBRILLATION [None]
  - CONFUSIONAL STATE [None]
  - CONJUNCTIVITIS [None]
  - DRUG HYPERSENSITIVITY [None]
  - FLUSHING [None]
  - HYPERHIDROSIS [None]
  - HYPERSENSITIVITY [None]
  - HYPOTENSION [None]
  - LOSS OF CONSCIOUSNESS [None]
  - NAUSEA [None]
  - PERICARDIAL EFFUSION [None]
  - POOR PERIPHERAL CIRCULATION [None]
  - PYREXIA [None]
  - RASH ERYTHEMATOUS [None]
  - RESPIRATORY RATE INCREASED [None]
  - SEPSIS [None]
  - SYSTEMIC LUPUS ERYTHEMATOSUS [None]
  - TACHYCARDIA [None]
